FAERS Safety Report 15468539 (Version 1)
Quarter: 2018Q4

REPORT INFORMATION
  Report Type: Spontaneous
  Country: US (occurrence: US)
  Receive Date: 20181005
  Receipt Date: 20181005
  Transmission Date: 20190204
  Serious: No
  Sender: FDA-Public Use
  Company Number: US-SA-2018SA273645

PATIENT
  Sex: Male

DRUGS (4)
  1. METHOTREXATE. [Concomitant]
     Active Substance: METHOTREXATE
     Dosage: UNK UNK, UNK
     Route: 048
     Dates: start: 201003, end: 201007
  2. XELJANZ XR [Concomitant]
     Active Substance: TOFACITINIB CITRATE
     Dosage: 11 MG, QD
     Route: 048
  3. ENBREL [Concomitant]
     Active Substance: ETANERCEPT
     Dosage: UNK UNK, UNK
     Route: 065
     Dates: start: 201508, end: 201708
  4. ARAVA [Suspect]
     Active Substance: LEFLUNOMIDE
     Route: 065
     Dates: start: 201008, end: 201101

REACTIONS (1)
  - Drug ineffective [Unknown]
